FAERS Safety Report 20140973 (Version 1)
Quarter: 2021Q4

REPORT INFORMATION
  Report Type: Spontaneous
  Country: US (occurrence: US)
  Receive Date: 20211202
  Receipt Date: 20211202
  Transmission Date: 20220303
  Serious: No
  Sender: FDA-Public Use
  Company Number: US-ALLERGAN-2115545US

PATIENT
  Age: 17 Year
  Sex: Male

DRUGS (2)
  1. INFED [Suspect]
     Active Substance: IRON DEXTRAN
     Indication: Iron deficiency anaemia
     Dosage: UNK UNK, SINGLE
     Route: 041
     Dates: start: 20201119, end: 20201119
  2. IRON SUCROSE [Concomitant]
     Active Substance: IRON SUCROSE

REACTIONS (3)
  - Screaming [Recovered/Resolved]
  - Wrong technique in product usage process [Unknown]
  - Cyanosis [Recovered/Resolved]

NARRATIVE: CASE EVENT DATE: 20201119
